FAERS Safety Report 10201302 (Version 1)
Quarter: 2014Q2

REPORT INFORMATION
  Report Type: Spontaneous
  Country: NO (occurrence: NO)
  Receive Date: 20140528
  Receipt Date: 20140528
  Transmission Date: 20141212
  Serious: Yes (Other)
  Sender: FDA-Public Use
  Company Number: NO-ASTRAZENECA-2014SE35162

PATIENT
  Age: 23 Year
  Sex: Female
  Weight: 79 kg

DRUGS (6)
  1. SEROQUEL [Suspect]
     Indication: PSYCHOTIC DISORDER
     Route: 048
     Dates: start: 20060425, end: 20060430
  2. SOLIAN [Concomitant]
     Indication: PSYCHOTIC DISORDER
     Dates: start: 20140128
  3. BETACAROTENE [Concomitant]
  4. OMEGA-3-TRIGLYCERIDES INCL. OTHER ESTERS AND ACIDS [Concomitant]
  5. FOLIC ACID [Concomitant]
  6. B-STRESS [Concomitant]

REACTIONS (2)
  - Cardiac failure [Recovered/Resolved with Sequelae]
  - Nervous system disorder [Recovering/Resolving]
